FAERS Safety Report 8431753-3 (Version None)
Quarter: 2012Q2

REPORT INFORMATION
  Report Type: 
  Country: None (occurrence: None)
  Receive Date: 20120606
  Receipt Date: 20120529
  Transmission Date: 20120825
  Serious: Yes (Death)
  Sender: FDA-Public Use
  Company Number: 2012HGS-003630

PATIENT
  Age: 27 Year
  Sex: Female
  Weight: 79.6 kg

DRUGS (7)
  1. OXYCONTIN (OXYCODONE HYDROCHLORIDE) (OXYCODONE HYDROCHLORIDE) [Concomitant]
  2. ALPRAZOLAM (ALPRAZOLAM0 (ALPRAZOLAM) [Concomitant]
  3. BENLYSTA [Suspect]
     Indication: SYSTEMIC LUPUS ERYTHEMATOSUS
     Dosage: 10 MG/KG, INTRAVENOUS DRIP
     Route: 041
     Dates: start: 20110708, end: 20120417
  4. HYDROXYCHLOROQUINE SULFATE [Concomitant]
  5. PERCOCET (TYLOX  /00446701/) (PARACETAMOL, OXYCODONE HYDROCHLORIDE, OX [Concomitant]
  6. PREDNISONE [Concomitant]
  7. ZOLPIDEM [Concomitant]

REACTIONS (19)
  - DIZZINESS [None]
  - DYSPNOEA [None]
  - RED BLOOD CELL COUNT INCREASED [None]
  - BLOOD CANNABINOIDS [None]
  - CARBON DIOXIDE DECREASED [None]
  - CARDIOMEGALY [None]
  - OXYGEN SATURATION DECREASED [None]
  - FIBRIN D DIMER INCREASED [None]
  - PLEURITIC PAIN [None]
  - PNEUMONIA [None]
  - CHEST PAIN [None]
  - PERICARDIAL EFFUSION [None]
  - ASTHENIA [None]
  - NAUSEA [None]
  - PULMONARY FIBROSIS [None]
  - PLEURAL EFFUSION [None]
  - BLOOD UREA DECREASED [None]
  - TACHYCARDIA [None]
  - ABDOMINAL PAIN [None]
